FAERS Safety Report 6274037-4 (Version None)
Quarter: 2009Q3

REPORT INFORMATION
  Report Type: 
  Country: None (occurrence: None)
  Receive Date: 20090720
  Receipt Date: 20090707
  Transmission Date: 20100115
  Serious: Yes (Other)
  Sender: FDA-Public Use
  Company Number: ZA-ELI_LILLY_AND_COMPANY-ZA200907001505

PATIENT
  Age: 56 Year
  Sex: Female

DRUGS (3)
  1. CYMBALTA [Suspect]
     Dosage: 60 MG, UNK
     Route: 048
     Dates: start: 20060801, end: 20090511
  2. ADCO-RETIC [Concomitant]
     Dosage: UNK, DAILY (1/D)
  3. NUZAK [Concomitant]
     Dates: start: 20090514

REACTIONS (1)
  - ATRIAL FLUTTER [None]
